FAERS Safety Report 20789703 (Version 1)
Quarter: 2022Q2

REPORT INFORMATION
  Report Type: Spontaneous
  Country: US (occurrence: US)
  Receive Date: 20220505
  Receipt Date: 20220505
  Transmission Date: 20220720
  Serious: Yes (Other)
  Sender: FDA-Public Use
  Company Number: US-ELI_LILLY_AND_COMPANY-US202204011118

PATIENT
  Age: 76 Year
  Sex: Female
  Weight: 56.961 kg

DRUGS (1)
  1. BEBTELOVIMAB [Suspect]
     Active Substance: BEBTELOVIMAB
     Indication: COVID-19
     Dosage: 175 MG, SINGLE
     Route: 042
     Dates: start: 20220422, end: 20220422

REACTIONS (7)
  - Cough [Unknown]
  - Dyspnoea [Unknown]
  - Tachycardia [Unknown]
  - Back pain [Unknown]
  - Hypertension [Unknown]
  - Hypoxia [Unknown]
  - Nausea [Unknown]

NARRATIVE: CASE EVENT DATE: 20220422
